FAERS Safety Report 23145554 (Version 1)
Quarter: 2023Q4

REPORT INFORMATION
  Report Type: Spontaneous
  Country: PL (occurrence: PL)
  Receive Date: 20231103
  Receipt Date: 20231103
  Transmission Date: 20240110
  Serious: Yes (Other)
  Sender: FDA-Public Use
  Company Number: PL-002147023-NVSC2023PL231314

PATIENT

DRUGS (2)
  1. RUXOLITINIB [Suspect]
     Active Substance: RUXOLITINIB
     Indication: Chronic graft versus host disease
     Dosage: 20 MG (2X10 MG)
     Route: 065
     Dates: start: 201812
  2. METHOTREXATE [Suspect]
     Active Substance: METHOTREXATE
     Indication: Chronic graft versus host disease
     Dosage: 15 MG/WEEK
     Route: 065

REACTIONS (10)
  - Ischaemic stroke [Unknown]
  - Dyslipidaemia [Unknown]
  - Device related thrombosis [Unknown]
  - Iron deficiency anaemia [Unknown]
  - Depression [Unknown]
  - Aphasia [Unknown]
  - Pulmonary fibrosis [Recovered/Resolved]
  - Systemic scleroderma [Unknown]
  - Disease progression [Unknown]
  - Hemiparesis [Unknown]

NARRATIVE: CASE EVENT DATE: 20190101
